FAERS Safety Report 17246494 (Version 4)
Quarter: 2020Q1

REPORT INFORMATION
  Report Type: Report from Study
  Country: US (occurrence: US)
  Receive Date: 20200108
  Receipt Date: 20200220
  Transmission Date: 20200409
  Serious: Yes (Hospitalization, Other)
  Sender: FDA-Public Use
  Company Number: NVSC2020US000643

PATIENT
  Sex: Male
  Weight: 83.01 kg

DRUGS (1)
  1. COSENTYX [Suspect]
     Active Substance: SECUKINUMAB
     Indication: PSORIASIS
     Dosage: 300 MG, QMO
     Route: 065
     Dates: start: 20181231, end: 20191030

REACTIONS (5)
  - Hepatic neoplasm [Unknown]
  - Hepatic enzyme increased [Not Recovered/Not Resolved]
  - Biopsy [Not Recovered/Not Resolved]
  - Portal tract inflammation [Unknown]
  - Cholestasis [Unknown]

NARRATIVE: CASE EVENT DATE: 20191101
